FAERS Safety Report 16535504 (Version 1)
Quarter: 2019Q3

REPORT INFORMATION
  Report Type: Spontaneous
  Country: US (occurrence: US)
  Receive Date: 20190705
  Receipt Date: 20190705
  Transmission Date: 20191004
  Serious: No
  Sender: FDA-Public Use
  Company Number: US-TEVA-2019-US-1067244

PATIENT
  Age: 75 Year
  Sex: Female

DRUGS (3)
  1. METRONIDAZOLE. [Suspect]
     Active Substance: METRONIDAZOLE
     Indication: CLOSTRIDIUM DIFFICILE INFECTION
     Dosage: 1000 MILLIGRAM DAILY; 500 MG 1 TABLET EVERY 12 HOURS FOR 7 DAYS
     Route: 065
     Dates: start: 20190603
  2. METRONIDAZOLE. [Suspect]
     Active Substance: METRONIDAZOLE
     Dosage: 1500 MILLIGRAM DAILY; 500 MG,1 TABLET EVERY 8 HOURS FOR 10 DAYS
     Route: 065
     Dates: start: 20190608, end: 20190618
  3. PROTONIX [Concomitant]
     Active Substance: PANTOPRAZOLE SODIUM

REACTIONS (2)
  - Diarrhoea [Not Recovered/Not Resolved]
  - Drug ineffective [Unknown]

NARRATIVE: CASE EVENT DATE: 20190603
